FAERS Safety Report 23190387 (Version 1)
Quarter: 2023Q4

REPORT INFORMATION
  Report Type: Spontaneous
  Country: IT (occurrence: IT)
  Receive Date: 20231116
  Receipt Date: 20231116
  Transmission Date: 20240109
  Serious: Yes (Other)
  Sender: FDA-Public Use
  Company Number: IT-ASTELLAS-2023US031828

PATIENT
  Age: 58 Year
  Sex: Male

DRUGS (1)
  1. PADCEV [Suspect]
     Active Substance: ENFORTUMAB VEDOTIN-EJFV
     Indication: Transitional cell carcinoma metastatic
     Dosage: 1.25 MG/KG, ONCE WEEKLY (STANDARD DOSE)
     Route: 042
     Dates: start: 20230712, end: 20231025

REACTIONS (1)
  - Skin toxicity [Recovered/Resolved]

NARRATIVE: CASE EVENT DATE: 20230802
